FAERS Safety Report 11911587 (Version 1)
Quarter: 2016Q1

REPORT INFORMATION
  Report Type: Spontaneous
  Country: HU (occurrence: HU)
  Receive Date: 20160112
  Receipt Date: 20160112
  Transmission Date: 20160526
  Serious: Yes (Other)
  Sender: FDA-Public Use
  Company Number: PHHY2016HU001526

PATIENT
  Sex: Female

DRUGS (2)
  1. XELODA [Suspect]
     Active Substance: CAPECITABINE
     Indication: FOETAL EXPOSURE DURING PREGNANCY
     Dosage: MATERNAL DOSE:1500 MG, QD
     Route: 064
     Dates: start: 20141022, end: 20150125
  2. TYVERB [Suspect]
     Active Substance: LAPATINIB
     Indication: FOETAL EXPOSURE DURING PREGNANCY
     Dosage: MATERNAL DOSE:1500 MG, BID
     Route: 064
     Dates: start: 20141022, end: 20150125

REACTIONS (1)
  - Vaginal atresia [Unknown]

NARRATIVE: CASE EVENT DATE: 201504
